FAERS Safety Report 4451191-8 (Version None)
Quarter: 2004Q3

REPORT INFORMATION
  Report Type: 
  Country: None (occurrence: None)
  Receive Date: 20040913
  Receipt Date: 20040702
  Transmission Date: 20050211
  Serious: No
  Sender: FDA-Public Use
  Company Number: 2004-BP-05364BP(0)

PATIENT
  Age: 76 Year
  Sex: Male

DRUGS (8)
  1. SPIRIVA [Suspect]
     Indication: ATELECTASIS
     Dosage: 18 MCG (18 MCG), IH
     Route: 055
  2. SPIRIVA [Suspect]
     Indication: CHRONIC OBSTRUCTIVE AIRWAYS DISEASE
     Dosage: 18 MCG (18 MCG), IH
     Route: 055
  3. AEOBID M [Concomitant]
  4. SEREVENT [Concomitant]
  5. COUMADIN [Concomitant]
  6. DIGOXIN [Concomitant]
  7. PREDNISONE [Concomitant]
  8. DYAZIDE [Concomitant]

REACTIONS (2)
  - DRY MOUTH [None]
  - GLOSSODYNIA [None]
